FAERS Safety Report 4300742-2 (Version None)
Quarter: 2004Q1

REPORT INFORMATION
  Report Type: 
  Country: None (occurrence: None)
  Receive Date: 20040218
  Receipt Date: 20040204
  Transmission Date: 20041129
  Serious: Yes (Other)
  Sender: FDA-Public Use
  Company Number: NSADSS2002026455

PATIENT
  Age: 53 Year
  Sex: Female

DRUGS (8)
  1. REMICADE [Suspect]
     Indication: RHEUMATOID ARTHRITIS
     Dosage: SEE IMAGE
     Route: 041
     Dates: start: 20000204, end: 20000204
  2. REMICADE [Suspect]
     Indication: RHEUMATOID ARTHRITIS
     Dosage: SEE IMAGE
     Route: 041
     Dates: start: 20011101, end: 20011101
  3. CELEBREX [Concomitant]
  4. ARAVA [Concomitant]
  5. PREMARIN [Concomitant]
  6. ALLERGY (CHLORPHENAMINE ) INJECTION [Concomitant]
  7. TYLENOL [Concomitant]
  8. ULTRAM [Concomitant]

REACTIONS (1)
  - EYE INFECTION TOXOPLASMAL [None]
